FAERS Safety Report 24245083 (Version 2)
Quarter: 2024Q3

REPORT INFORMATION
  Report Type: Spontaneous
  Country: DE (occurrence: DE)
  Receive Date: 20240823
  Receipt Date: 20240923
  Transmission Date: 20241016
  Serious: Yes (Hospitalization)
  Sender: ASCEND
  Company Number: DE-Ascend Therapeutics US, LLC-2160811

PATIENT
  Age: 49 Year
  Sex: Female

DRUGS (4)
  1. ESTROGEL [Suspect]
     Active Substance: ESTRADIOL
     Indication: Hormone replacement therapy
     Dates: start: 20240806
  2. ESTRADIOL [Suspect]
     Active Substance: ESTRADIOL
     Dates: start: 20240806
  3. PROGESTERONE [Suspect]
     Active Substance: PROGESTERONE
     Dates: start: 2024
  4. PROGESTERONE [Suspect]
     Active Substance: PROGESTERONE
     Dates: start: 20240806, end: 2024

REACTIONS (3)
  - Dyspnoea [Recovered/Resolved]
  - Dizziness [Unknown]
  - Asthenia [Recovered/Resolved]

NARRATIVE: CASE EVENT DATE: 20240806
